FAERS Safety Report 18121636 (Version 1)
Quarter: 2020Q3

REPORT INFORMATION
  Report Type: Spontaneous
  Country: US (occurrence: US)
  Receive Date: 20200806
  Receipt Date: 20200806
  Transmission Date: 20201103
  Serious: No
  Sender: FDA-Public Use
  Company Number: US-NEURELIS, INC.-2020NEU000056

PATIENT

DRUGS (8)
  1. DIASTAT                            /00017001/ [Concomitant]
     Indication: SEIZURE
     Dosage: 10 MG, PRN
     Route: 054
  2. SARCOSINE [Concomitant]
     Active Substance: SARCOSINE
     Indication: PRODUCT USED FOR UNKNOWN INDICATION
     Dosage: UNK
     Route: 065
  3. CBD OIL [Concomitant]
     Active Substance: CANNABIDIOL\HERBALS
     Indication: PRODUCT USED FOR UNKNOWN INDICATION
     Dosage: 10 GTT, DAYTIME
     Route: 048
  4. MOTRIN [Concomitant]
     Active Substance: IBUPROFEN
     Indication: PRODUCT USED FOR UNKNOWN INDICATION
     Dosage: UNK, PRN
     Route: 065
  5. AZITHROMYCIN ANHYDROUS. [Concomitant]
     Active Substance: AZITHROMYCIN ANHYDROUS
     Indication: PRODUCT USED FOR UNKNOWN INDICATION
     Dosage: 250 MG, QOD
     Route: 065
  6. VALTOCO [Suspect]
     Active Substance: DIAZEPAM
     Indication: SEIZURE
     Dosage: 10 MG, 1 NOSTRIL, PRN, ANOTHER DOSE AFTER 4HRS, NO MORE THAN 2 DOSES PER EPISODE
     Route: 045
     Dates: start: 20200619
  7. MARIJUANA [Concomitant]
     Active Substance: CANNABIS SATIVA SUBSP. INDICA TOP
     Indication: PRODUCT USED FOR UNKNOWN INDICATION
     Dosage: AT NIGHT BEFORE BEDTIME (4 DROPS IN A PILL)
  8. ACYCLOVIR                          /00587301/ [Concomitant]
     Active Substance: ACYCLOVIR
     Indication: PRODUCT USED FOR UNKNOWN INDICATION
     Dosage: 400 MG, QOD
     Route: 065

REACTIONS (9)
  - Hypervigilance [Unknown]
  - Nasal discomfort [Unknown]
  - Agitation [Unknown]
  - Headache [Unknown]
  - Aggression [Unknown]
  - Therapeutic product effect delayed [Unknown]
  - Restlessness [Unknown]
  - Drug delivery system malfunction [Unknown]
  - Epistaxis [Unknown]

NARRATIVE: CASE EVENT DATE: 2020
